FAERS Safety Report 8487132-6 (Version None)
Quarter: 2012Q3

REPORT INFORMATION
  Report Type: 
  Country: None (occurrence: None)
  Receive Date: 20120704
  Receipt Date: 20120702
  Transmission Date: 20120928
  Serious: Yes (Death, Hospitalization)
  Sender: FDA-Public Use
  Company Number: PHHY2012FR056877

PATIENT
  Sex: Male

DRUGS (1)
  1. ONBREZ [Suspect]
     Indication: CHRONIC OBSTRUCTIVE PULMONARY DISEASE
     Dates: start: 20120320

REACTIONS (4)
  - HAEMORRHAGE [None]
  - CARDIAC DISORDER [None]
  - CONJUNCTIVAL HAEMORRHAGE [None]
  - FALL [None]
